FAERS Safety Report 5931728-X (Version None)
Quarter: 2008Q4

REPORT INFORMATION
  Report Type: 
  Country: None (occurrence: None)
  Receive Date: 20081027
  Receipt Date: 20081015
  Transmission Date: 20090506
  Serious: Yes (Other)
  Sender: FDA-Public Use
  Company Number: GB-ROCHE-591801

PATIENT
  Sex: Female
  Weight: 76.2 kg

DRUGS (4)
  1. ORLISTAT [Suspect]
     Indication: OBESITY
     Route: 048
     Dates: start: 20080421
  2. OMEPRAZOLE [Concomitant]
     Indication: HIATUS HERNIA
     Dosage: REPORTED AS LOZAC
     Route: 048
  3. SEREVENT [Concomitant]
     Indication: ASTHMA
     Dosage: REPORTED AS SELEVENT. 25MCG TWICE IN THE MORNING AND TWICE IN THE EVENING
     Route: 048
  4. SALBUTAMOL [Concomitant]
     Indication: ASTHMA
     Dosage: 100MCG TWICE IN THE MORNING AND TWICE IN THE EVENING
     Route: 048

REACTIONS (1)
  - HYPERTENSION [None]
